FAERS Safety Report 5535473-4 (Version None)
Quarter: 2007Q4

REPORT INFORMATION
  Report Type: 
  Country: None (occurrence: None)
  Receive Date: 20071206
  Receipt Date: 20071127
  Transmission Date: 20080405
  Serious: Yes (Hospitalization)
  Sender: FDA-Public Use
  Company Number: US-BAXTER-2007BH007776

PATIENT
  Age: 68 Year
  Sex: Male
  Weight: 92 kg

DRUGS (4)
  1. TRAVASOL 10% [Suspect]
     Indication: NUTRITIONAL SUPPORT
     Dosage: DOSE UNIT:UNKNOWN
     Route: 033
  2. PROSOL 20% SULFITE FREE [Suspect]
     Indication: NUTRITIONAL SUPPORT
     Dosage: DOSE UNIT:UNKNOWN
     Route: 033
  3. STERILE WATER FOR INJECTION IN PLASTIC CONTAINER [Suspect]
     Indication: NUTRITIONAL SUPPORT
     Dosage: DOSE UNIT:UNKNOWN
     Route: 033
  4. DIANEAL [Suspect]
     Indication: RENAL FAILURE CHRONIC
     Route: 033
     Dates: start: 20050101, end: 20070901

REACTIONS (1)
  - FUNGAL PERITONITIS [None]
